FAERS Safety Report 7867416-2 (Version None)
Quarter: 2011Q4

REPORT INFORMATION
  Report Type: 
  Country: None (occurrence: None)
  Receive Date: 20111028
  Receipt Date: 20111018
  Transmission Date: 20120403
  Serious: Yes (Other)
  Sender: FDA-Public Use
  Company Number: US-BAYER-2011-027465

PATIENT
  Age: 33 Year
  Sex: Female
  Weight: 72 kg

DRUGS (8)
  1. ACETAMINOPHEN AND HYDROCODONE BITARTRATE [Concomitant]
     Indication: MYALGIA
  2. LYRICA [Concomitant]
     Dosage: 75 MG, UNK
     Route: 048
  3. MULTI-VITAMIN [Concomitant]
     Dosage: 1 DF, QD
     Route: 048
  4. YAZ [Suspect]
     Indication: CONTRACEPTION
     Dosage: UNK
     Dates: start: 20070101, end: 20100501
  5. ACETAMINOPHEN AND HYDROCODONE BITARTRATE [Concomitant]
     Indication: ARTHRALGIA
     Dosage: 5 - 500 MG
     Route: 048
     Dates: start: 19990101, end: 20090101
  6. TRAMADOL HCL [Concomitant]
     Indication: ARTHRALGIA
     Dosage: 75 MG, UNK
     Route: 048
     Dates: start: 20080101
  7. NAPROXEN [Concomitant]
     Dosage: 500 MG, PRN
     Route: 048
  8. TRAMADOL HCL [Concomitant]
     Indication: MYALGIA

REACTIONS (8)
  - DIARRHOEA [None]
  - PAIN [None]
  - CONSTIPATION [None]
  - ABDOMINAL PAIN [None]
  - CHOLECYSTITIS CHRONIC [None]
  - GASTROOESOPHAGEAL REFLUX DISEASE [None]
  - GASTRITIS [None]
  - ABDOMINAL PAIN UPPER [None]
